FAERS Safety Report 10181792 (Version 2)
Quarter: 2014Q2

REPORT INFORMATION
  Report Type: Spontaneous
  Country: FR (occurrence: FR)
  Receive Date: 20140519
  Receipt Date: 20140528
  Transmission Date: 20141212
  Serious: Yes (Hospitalization)
  Sender: FDA-Public Use
  Company Number: FR-B.I. PHARMACEUTICALS,INC./RIDGEFIELD-2014-BI-21932FF

PATIENT
  Age: 86 Year
  Sex: Male

DRUGS (6)
  1. PRADAXA [Suspect]
     Indication: ATRIAL FIBRILLATION
     Dosage: 220 MG
     Route: 065
     Dates: start: 201305
  2. SIMVASTATINE [Suspect]
     Indication: PRODUCT USED FOR UNKNOWN INDICATION
     Route: 065
  3. HYPOLIPIDEMIC DRUG [Concomitant]
     Route: 065
  4. STATIN (HMG COA REDUCTASE INHIBITORS) [Concomitant]
     Route: 065
  5. LASILIX [Concomitant]
     Route: 065
  6. TRIATEC [Concomitant]
     Route: 065

REACTIONS (3)
  - Cardiac failure [Recovered/Resolved]
  - Blood alkaline phosphatase increased [Not Recovered/Not Resolved]
  - Gamma-glutamyltransferase increased [Not Recovered/Not Resolved]
